FAERS Safety Report 24806866 (Version 1)
Quarter: 2025Q1

REPORT INFORMATION
  Report Type: Spontaneous
  Country: US (occurrence: US)
  Receive Date: 20250104
  Receipt Date: 20250104
  Transmission Date: 20250409
  Serious: Yes (Other)
  Sender: Unknown Manufacturer
  Company Number: US-KOANAAP-SML-US-2024-01286

PATIENT
  Age: 78 Year
  Sex: Female

DRUGS (2)
  1. AZACITIDINE [Suspect]
     Active Substance: AZACITIDINE
     Indication: Adult T-cell lymphoma/leukaemia
     Route: 065
  2. ROMIDEPSIN [Suspect]
     Active Substance: ROMIDEPSIN
     Indication: Adult T-cell lymphoma/leukaemia
     Route: 065

REACTIONS (1)
  - Disease progression [Unknown]
